FAERS Safety Report 16451905 (Version 3)
Quarter: 2019Q3

REPORT INFORMATION
  Report Type: Spontaneous
  Country: PL (occurrence: PL)
  Receive Date: 20190619
  Receipt Date: 20190807
  Transmission Date: 20191004
  Serious: Yes (Hospitalization, Other)
  Sender: FDA-Public Use
  Company Number: PL-MYLANLABS-2019M1056260

PATIENT
  Age: 70 Year
  Sex: Male

DRUGS (6)
  1. CLOPIDOGREL [Suspect]
     Active Substance: CLOPIDOGREL BISULFATE
     Indication: ANTIPLATELET THERAPY
     Dosage: DOSAGE FORM: UNSPECIFIED
     Route: 065
  2. ACETYLSALICYLIC ACID [Suspect]
     Active Substance: ASPIRIN
     Indication: MYOCARDIAL INFARCTION
     Dosage: 300 MILLIGRAM (DOSAGE FORM: UNSPECIFIED)
     Route: 065
  3. ABIRATERONE ACETATE. [Suspect]
     Active Substance: ABIRATERONE ACETATE
     Indication: PROSTATE CANCER
     Dosage: UNK
     Route: 048
  4. DALTEPARIN [Suspect]
     Active Substance: DALTEPARIN
     Indication: MYOCARDIAL INFARCTION
     Dosage: 5000 INTERNATIONAL UNIT (DOSAGE FORM: UNSPECIFIED)
     Route: 065
  5. DALTEPARIN [Suspect]
     Active Substance: DALTEPARIN
     Dosage: 5000 U, UNK
  6. ACETYLSALICYLIC ACID W/CLOPIDOGREL BISULFATE [Suspect]
     Active Substance: ASPIRIN\CLOPIDOGREL BISULFATE
     Indication: ANTIPLATELET THERAPY
     Dosage: 300 MILLIGRAM

REACTIONS (4)
  - Chest pain [Unknown]
  - Drug ineffective [Unknown]
  - Haemorrhage urinary tract [Unknown]
  - Cardiac disorder [Unknown]
